FAERS Safety Report 6726747-X (Version None)
Quarter: 2010Q2

REPORT INFORMATION
  Report Type: 
  Country: None (occurrence: None)
  Receive Date: 20100515
  Receipt Date: 20100506
  Transmission Date: 20101027
  Serious: Yes (Hospitalization)
  Sender: FDA-Public Use
  Company Number: DE-JNJFOC-20100306551

PATIENT
  Age: 49 Year

DRUGS (2)
  1. TAVANIC [Suspect]
     Indication: SINUSITIS
     Route: 048
  2. BISOPROLOL [Concomitant]
     Indication: ARRHYTHMIA
     Route: 065

REACTIONS (7)
  - DIARRHOEA [None]
  - FACIAL PARESIS [None]
  - GUILLAIN-BARRE SYNDROME [None]
  - MYALGIA [None]
  - NERVE ROOT LESION [None]
  - SCIATICA [None]
  - SWELLING [None]
